FAERS Safety Report 4498211-2 (Version None)
Quarter: 2004Q3

REPORT INFORMATION
  Report Type: 
  Country: None (occurrence: None)
  Receive Date: 20040927
  Receipt Date: 20040607
  Transmission Date: 20050211
  Serious: No
  Sender: FDA-Public Use
  Company Number: USA040669450

PATIENT
  Age: 16 Year
  Sex: Male
  Weight: 53 kg

DRUGS (1)
  1. STRATTERA [Suspect]
     Indication: DISTURBANCE IN ATTENTION
     Dosage: 20 MG/2 DAY
     Dates: start: 20040517

REACTIONS (4)
  - DRUG INEFFECTIVE [None]
  - FATIGUE [None]
  - TIC [None]
  - URINARY HESITATION [None]
